FAERS Safety Report 10486025 (Version 1)
Quarter: 2014Q3

REPORT INFORMATION
  Report Type: Spontaneous
  Country: GB (occurrence: None)
  Receive Date: 20140930
  Receipt Date: 20140930
  Transmission Date: 20150326
  Serious: Yes (Disabling)
  Sender: FDA-Public Use
  Company Number: None

PATIENT
  Age: 28 Year
  Sex: Female

DRUGS (1)
  1. PHENOXYMETHYLPENICILLIN [Suspect]
     Active Substance: PENICILLIN V
     Indication: TONSILLITIS BACTERIAL
     Dosage: 2 TABLETS FOUR TIMES PER DAY FOUR TIMES DAILY TAKEN BY MOUTH
     Route: 048
     Dates: start: 20140924

REACTIONS (5)
  - Dizziness [None]
  - Fatigue [None]
  - Diarrhoea [None]
  - Vaginal haemorrhage [None]
  - Balance disorder [None]

NARRATIVE: CASE EVENT DATE: 20140926
